FAERS Safety Report 22021723 (Version 1)
Quarter: 2023Q1

REPORT INFORMATION
  Report Type: Spontaneous
  Country: US (occurrence: None)
  Receive Date: 20230219
  Receipt Date: 20230219
  Transmission Date: 20230417
  Serious: No
  Sender: FDA-Public Use
  Company Number: None

PATIENT
  Age: 55 Year
  Sex: Male
  Weight: 88.2 kg

DRUGS (1)
  1. ERTAPENEM [Suspect]
     Active Substance: ERTAPENEM
     Dates: start: 20230212

REACTIONS (3)
  - Vision blurred [None]
  - Infusion related reaction [None]
  - Wrong technique in product usage process [None]

NARRATIVE: CASE EVENT DATE: 20230217
